FAERS Safety Report 5895301-4 (Version None)
Quarter: 2008Q3

REPORT INFORMATION
  Report Type: 
  Country: None (occurrence: None)
  Receive Date: 20080924
  Receipt Date: 20080918
  Transmission Date: 20090109
  Serious: Yes (Hospitalization)
  Sender: FDA-Public Use
  Company Number: FR-ABBOTT-08P-056-0474034-00

PATIENT
  Age: 68 Year
  Sex: Female

DRUGS (4)
  1. HUMIRA [Suspect]
     Indication: CROHN'S DISEASE
     Route: 058
     Dates: start: 20080801
  2. ANGIOTENSIN CONVERTING ENZYME INHIBITORS [Suspect]
     Indication: DRUG USE FOR UNKNOWN INDICATION
  3. DIURETICS [Suspect]
     Indication: DRUG USE FOR UNKNOWN INDICATION
  4. CORTICOSTEROIDS [Concomitant]
     Indication: DRUG USE FOR UNKNOWN INDICATION

REACTIONS (4)
  - DEHYDRATION [None]
  - DIARRHOEA [None]
  - NEPHROPATHY [None]
  - RENAL FAILURE ACUTE [None]
